FAERS Safety Report 23953736 (Version 1)
Quarter: 2024Q2

REPORT INFORMATION
  Report Type: Spontaneous
  Country: PT (occurrence: PT)
  Receive Date: 20240609
  Receipt Date: 20240609
  Transmission Date: 20240716
  Serious: Yes (Other)
  Sender: FDA-Public Use
  Company Number: PT-AUROBINDO-AUR-APL-2024-026752

PATIENT
  Age: 40 Year
  Sex: Male

DRUGS (1)
  1. LEVOFLOXACIN [Suspect]
     Active Substance: LEVOFLOXACIN
     Indication: Leptospirosis
     Dosage: 750 MILLIGRAM, DAILY ( LAST 24 HOURS)
     Route: 065

REACTIONS (1)
  - Drug ineffective [Unknown]
